FAERS Safety Report 4475129-2 (Version None)
Quarter: 2004Q3

REPORT INFORMATION
  Report Type: 
  Country: None (occurrence: None)
  Receive Date: 20040923
  Receipt Date: 20040803
  Transmission Date: 20050211
  Serious: No
  Sender: FDA-Public Use
  Company Number: USA040670911

PATIENT
  Age: 74 Year
  Sex: Female
  Weight: 45 kg

DRUGS (7)
  1. FORTEO [Suspect]
     Indication: OSTEOPOROSIS
     Dosage: 20 UG/1 DAY
     Dates: start: 20040301
  2. SYNTHROID [Concomitant]
  3. PRILOSEC [Concomitant]
  4. FOSAMAX [Concomitant]
  5. CALTRATE 600 PLUS VITAMIN D [Concomitant]
  6. MULTIVITAMIN [Concomitant]
  7. FOLGARD [Concomitant]

REACTIONS (1)
  - INJECTION SITE HAEMORRHAGE [None]
